FAERS Safety Report 4954281-6 (Version None)
Quarter: 2006Q1

REPORT INFORMATION
  Report Type: 
  Country: None (occurrence: None)
  Receive Date: 20060322
  Receipt Date: 20060303
  Transmission Date: 20060701
  Serious: Yes (Hospitalization)
  Sender: FDA-Public Use
  Company Number: JP200602000853

PATIENT
  Age: 59 Year
  Sex: Male
  Weight: 54.4 kg

DRUGS (9)
  1. HUMALOG MIX 50/50 [Suspect]
     Indication: DIABETES MELLITUS
     Dosage: SEE IMAGE
     Route: 058
     Dates: start: 20060111, end: 20060113
  2. HUMALOG MIX 50/50 [Suspect]
     Indication: DIABETES MELLITUS
     Dosage: SEE IMAGE
     Route: 058
     Dates: start: 20060111, end: 20060113
  3. HUMACART 30% REGULAR, 70% NPH (HUMAN INSULIN (RDNA ORIGIN) 30% REGULAR [Suspect]
     Indication: DIABETES MELLITUS
     Dates: end: 20060110
  4. HUMACART 30% REGULAR, 70% NPH (HUMAN INSULIN (RDNA ORIGIN) 30% REGULAR [Suspect]
     Indication: DIABETES MELLITUS
     Dates: start: 20060113
  5. HUMACART REGULAR (HUMAN INSULIN (RDNA ORIGIN) REGULAR [Suspect]
     Indication: DIABETES MELLITUS
     Dates: end: 20060110
  6. HUMACART REGULAR (HUMAN INSULIN (RDNA ORIGIN) REGULAR [Suspect]
     Indication: DIABETES MELLITUS
     Dates: start: 20060113
  7. ALUMINUM HYDROXIDE AND MAGNESIUM TRISILICATE [Concomitant]
  8. FLOMOX (CEFCAPENE PIVOXIL HYDROCHLORIDE) [Concomitant]
  9. FLUMARIN (FLOMOXEF SODIUM) [Concomitant]

REACTIONS (11)
  - ALANINE AMINOTRANSFERASE INCREASED [None]
  - ASPARTATE AMINOTRANSFERASE INCREASED [None]
  - BLOOD ALKALINE PHOSPHATASE INCREASED [None]
  - BLOOD BILIRUBIN INCREASED [None]
  - BLOOD IMMUNOGLOBULIN E [None]
  - BLOOD LACTATE DEHYDROGENASE INCREASED [None]
  - DIABETES MELLITUS INADEQUATE CONTROL [None]
  - GAMMA-GLUTAMYLTRANSFERASE INCREASED [None]
  - LIVER DISORDER [None]
  - LIVER FUNCTION TEST ABNORMAL [None]
  - LYMPHOCYTE STIMULATION TEST POSITIVE [None]
